FAERS Safety Report 9672404 (Version 1)
Quarter: 2013Q4

REPORT INFORMATION
  Report Type: Other
  Country: JP (occurrence: JP)
  Receive Date: 20131106
  Receipt Date: 20131106
  Transmission Date: 20140711
  Serious: Yes (Hospitalization)
  Sender: FDA-Public Use
  Company Number: JP-BRISTOL-MYERS SQUIBB COMPANY-19759778

PATIENT
  Age: 60 Year
  Sex: Male

DRUGS (1)
  1. KENACORT-A INJ 40 MG/ML [Suspect]
     Dosage: 1ML:10MG OF 40MG/5ML,INJECTED IN TO SUBMUCOSA

REACTIONS (3)
  - Oesophageal perforation [Unknown]
  - Pneumomediastinum [Unknown]
  - Paraoesophageal abscess [Unknown]
